FAERS Safety Report 8928198 (Version 1)
Quarter: 2012Q4

REPORT INFORMATION
  Report Type: 
  Country: US (occurrence: US)
  Receive Date: 20121128
  Receipt Date: 20121128
  Transmission Date: 20130627
  Serious: Yes (Other)
  Sender: FDA-Public Use
  Company Number: PHEH2012US022401

PATIENT

DRUGS (1)
  1. ILARIS [Suspect]
     Indication: HYPER IGD SYNDROME

REACTIONS (1)
  - Syncope [Unknown]
